FAERS Safety Report 7901100 (Version 2)
Quarter: 2013Q1

REPORT INFORMATION
  Report Type: Spontaneous
  Country: US (occurrence: US)
  Receive Date: 20110415
  Receipt Date: 20130123
  Transmission Date: 20140127
  Serious: Yes (Hospitalization, Other)
  Sender: FDA-Public Use
  Company Number: US-BAYER-2011-032069

PATIENT
  Age: 41 Year
  Sex: Female

DRUGS (5)
  1. YAZ [Suspect]
     Dosage: UNK
     Dates: start: 2001, end: 200309
  2. YASMIN [Suspect]
     Dosage: UNK
     Dates: start: 2001, end: 200309
  3. ATARAX [Concomitant]
     Route: 048
  4. WELLBUTRIN [Concomitant]
     Route: 048
  5. ALBUTEROL [Concomitant]
     Route: 045

REACTIONS (4)
  - Deep vein thrombosis [None]
  - Thrombosis [None]
  - Thrombophlebitis superficial [None]
  - Pelvic venous thrombosis [None]
